FAERS Safety Report 4437236-X (Version None)
Quarter: 2004Q3

REPORT INFORMATION
  Report Type: 
  Country: None (occurrence: None)
  Receive Date: 20040721
  Receipt Date: 20040624
  Transmission Date: 20050211
  Serious: No
  Sender: FDA-Public Use
  Company Number: 2004211149US

PATIENT
  Age: 20 Year
  Sex: Female
  Weight: 78 kg

DRUGS (1)
  1. SOMAVERT [Suspect]
     Indication: ACROMEGALY
     Dosage: 10 MG, QD, SUBCUTANEOUS; 10 MG, TWICE WEEKLY, SUBCUTANEOUS
     Route: 058
     Dates: start: 20040302

REACTIONS (1)
  - INJECTION SITE CELLULITIS [None]
